FAERS Safety Report 7588331-8 (Version None)
Quarter: 2011Q3

REPORT INFORMATION
  Report Type: 
  Country: None (occurrence: None)
  Receive Date: 20110705
  Receipt Date: 20110621
  Transmission Date: 20111222
  Serious: Yes (Other)
  Sender: FDA-Public Use
  Company Number: US-BAYER-200929820NA

PATIENT
  Sex: Male

DRUGS (13)
  1. BIAXIN [Concomitant]
     Dosage: 500 MG, BID
     Route: 048
  2. TRASYLOL [Suspect]
     Indication: PRODUCT USED FOR UNKNOWN INDICATION
     Dosage: SOLUTION FOR INFUSION
     Route: 042
     Dates: start: 20051010
  3. CARTIA XT [Concomitant]
     Dosage: 250 MG, QD
     Route: 048
  4. MS CONTIN [Concomitant]
     Dosage: 15 MG, TID
     Route: 048
  5. COUMADIN [Concomitant]
     Dosage: 5 MG, QD
     Route: 048
  6. XOPENEX [Concomitant]
     Dosage: 0.65 MG, TID
  7. VICODIN [Concomitant]
     Dosage: 5MG, 1-2 TABLETS EVERY 4 HOURS AS NEEDED
     Route: 048
  8. NIFEREX [Concomitant]
     Dosage: 150 MG, BID
     Route: 048
  9. XANAX [Concomitant]
     Dosage: 0.25 MG, QD
     Route: 048
  10. LASIX [Concomitant]
     Dosage: 60 MG, QD
     Route: 048
  11. PRAVACHOL [Concomitant]
     Dosage: 20 MG, QD
     Route: 048
  12. NYSTATIN [Concomitant]
     Dosage: 5 ML, QID
     Route: 048
  13. ASCRIPTIN [Concomitant]
     Dosage: 5 G, QD
     Route: 048

REACTIONS (10)
  - STRESS [None]
  - PAIN [None]
  - RENAL IMPAIRMENT [None]
  - EMOTIONAL DISTRESS [None]
  - RENAL INJURY [None]
  - UNEVALUABLE EVENT [None]
  - INJURY [None]
  - RENAL FAILURE [None]
  - FEAR [None]
  - ANXIETY [None]
